FAERS Safety Report 5030886-1 (Version None)
Quarter: 2006Q2

REPORT INFORMATION
  Report Type: 
  Country: None (occurrence: None)
  Receive Date: 20060619
  Receipt Date: 20060609
  Transmission Date: 20061013
  Serious: Yes (Other)
  Sender: FDA-Public Use
  Company Number: 0601337US

PATIENT
  Age: 83 Year
  Sex: Female

DRUGS (2)
  1. OFLOXACIN [Suspect]
     Indication: ULCERATIVE KERATITIS
     Dosage: OPHTHALMIC
     Route: 047
  2. CYCLOPENTOLATE HYDROCHLORIDE(CYCLOPENTOLATE HYDROCHLORIDE) [Concomitant]

REACTIONS (2)
  - CORNEAL DEPOSITS [None]
  - DRUG INTERACTION [None]
